FAERS Safety Report 6975291-3 (Version None)
Quarter: 2010Q3

REPORT INFORMATION
  Report Type: 
  Country: None (occurrence: None)
  Receive Date: 20100910
  Receipt Date: 20090227
  Transmission Date: 20110219
  Serious: No
  Sender: FDA-Public Use
  Company Number: US-WYE-H08423609

PATIENT
  Sex: Female
  Weight: 95.34 kg

DRUGS (6)
  1. PRISTIQ [Suspect]
     Indication: DEPRESSION
     Route: 048
     Dates: start: 20090218, end: 20090218
  2. COPAXONE [Concomitant]
  3. LEVOTHYROXINE SODIUM [Concomitant]
  4. FOSAMAX [Concomitant]
  5. TEGRETOL [Concomitant]
  6. BACLOFEN [Concomitant]

REACTIONS (1)
  - DIZZINESS [None]
